FAERS Safety Report 7311944-5 (Version None)
Quarter: 2011Q1

REPORT INFORMATION
  Report Type: 
  Country: None (occurrence: None)
  Receive Date: 20110224
  Receipt Date: 20110217
  Transmission Date: 20110831
  Serious: Yes (Hospitalization, Other)
  Sender: FDA-Public Use
  Company Number: FR-PFIZER INC-2010172927

PATIENT
  Age: 58 Year
  Sex: Female

DRUGS (4)
  1. AUGMENTIN '125' [Suspect]
     Dosage: UNK
     Dates: start: 20101007, end: 20101011
  2. INVESTIGATIONAL DRUG [Suspect]
     Indication: EMBOLISM ARTERIAL
     Dosage: 5 MG, 1X/DAY
     Route: 048
     Dates: start: 20101007, end: 20101011
  3. ATARAX [Suspect]
     Dosage: UNK
     Dates: start: 20101008, end: 20101009
  4. EFFERALGAN [Suspect]
     Dosage: UNK
     Dates: start: 20101007, end: 20101011

REACTIONS (5)
  - CYTOLYTIC HEPATITIS [None]
  - CHOLESTASIS [None]
  - ALANINE AMINOTRANSFERASE INCREASED [None]
  - ASPARTATE AMINOTRANSFERASE INCREASED [None]
  - LUNG NEOPLASM MALIGNANT [None]
